FAERS Safety Report 6950894-0 (Version None)
Quarter: 2010Q3

REPORT INFORMATION
  Report Type: 
  Country: None (occurrence: None)
  Receive Date: 20100828
  Receipt Date: 20100302
  Transmission Date: 20110219
  Serious: No
  Sender: FDA-Public Use
  Company Number: US-ABBOTT-10P-163-0629897-00

PATIENT
  Sex: Female
  Weight: 74.91 kg

DRUGS (7)
  1. NIASPAN [Suspect]
     Indication: BLOOD TRIGLYCERIDES INCREASED
     Dates: start: 20090301
  2. NIASPAN [Suspect]
     Dosage: AT BEDTIME
     Route: 048
     Dates: start: 20091101
  3. SIMCOR [Suspect]
     Indication: BLOOD TRIGLYCERIDES INCREASED
     Dosage: 500/20MG AT BEDTIME
     Dates: start: 20091101
  4. SIMCOR [Suspect]
     Dosage: 500/20MG X 2, AT BEDTIME
     Route: 048
  5. OMECOR 2 [Concomitant]
     Indication: PRODUCT USED FOR UNKNOWN INDICATION
  6. ANTARA (MICRONIZED) [Concomitant]
     Indication: PRODUCT USED FOR UNKNOWN INDICATION
  7. TRILIPIX [Concomitant]
     Indication: PRODUCT USED FOR UNKNOWN INDICATION

REACTIONS (4)
  - FLUSHING [None]
  - RASH PAPULAR [None]
  - RASH PRURITIC [None]
  - URTICARIA [None]
